FAERS Safety Report 6381707-6 (Version None)
Quarter: 2009Q3

REPORT INFORMATION
  Report Type: 
  Country: None (occurrence: None)
  Receive Date: 20090930
  Receipt Date: 20090918
  Transmission Date: 20100115
  Serious: Yes (Hospitalization)
  Sender: FDA-Public Use
  Company Number: PHHY2009RU40097

PATIENT
  Sex: Female

DRUGS (2)
  1. LAMISIL [Suspect]
     Indication: ONYCHOMYCOSIS
     Dosage: 1 PILL DAILY
     Route: 048
     Dates: start: 20090526, end: 20090607
  2. NSAID'S [Concomitant]
     Indication: OSTEOCHONDROSIS

REACTIONS (6)
  - ABDOMINAL PAIN UPPER [None]
  - CHOLECYSTITIS CHRONIC [None]
  - CONDITION AGGRAVATED [None]
  - DYSPEPSIA [None]
  - NAUSEA [None]
  - PANCREATITIS [None]
